FAERS Safety Report 6934086-7 (Version None)
Quarter: 2010Q3

REPORT INFORMATION
  Report Type: 
  Country: None (occurrence: None)
  Receive Date: 20100820
  Receipt Date: 20100812
  Transmission Date: 20110219
  Serious: Yes (Hospitalization, Other)
  Sender: FDA-Public Use
  Company Number: US-ABBOTT-10P-163-0664018-00

PATIENT
  Sex: Female
  Weight: 740.93 kg

DRUGS (25)
  1. HUMIRA [Suspect]
     Indication: RHEUMATOID ARTHRITIS
     Dates: start: 20090701
  2. OXYGEN [Suspect]
     Indication: CHRONIC OBSTRUCTIVE PULMONARY DISEASE
     Dates: start: 20050101
  3. HYDROMORPHONE [Concomitant]
     Indication: BACK PAIN
     Dosage: IMPLANTED PAIN PUMP CONTINUOUSLY
  4. LORAZEPAM [Concomitant]
     Indication: ANXIETY
  5. HYDROCODONE BITARTRATE [Concomitant]
     Indication: PAIN
     Dosage: AS NEEDED
  6. VUO-NEB [Concomitant]
     Indication: CHRONIC OBSTRUCTIVE PULMONARY DISEASE
     Dosage: PER NEBULIZER
     Route: 055
  7. ATENOLOL [Concomitant]
     Indication: HYPERHIDROSIS
  8. LISINOPRIL [Concomitant]
     Indication: HYPERTENSION
  9. CYMBALTA [Concomitant]
     Indication: DEPRESSION
  10. VITAMIN D [Concomitant]
     Indication: VITAMIN SUPPLEMENTATION
  11. ADVAIR DISKUS 100/50 [Concomitant]
     Indication: CHRONIC OBSTRUCTIVE PULMONARY DISEASE
  12. FOLIC ACID [Concomitant]
     Indication: RHEUMATOID ARTHRITIS
  13. BONIVA [Concomitant]
     Indication: OSTEOPOROSIS
  14. LEVOTHYROXINE SODIUM [Concomitant]
     Indication: HYPOTHYROIDISM
  15. METHOTREXATE [Concomitant]
     Indication: RHEUMATOID ARTHRITIS
  16. PANTOPRAZOLE [Concomitant]
     Indication: GASTRIC DISORDER
  17. PANTOPRAZOLE [Concomitant]
     Indication: PROPHYLAXIS
  18. MIRALAX [Concomitant]
     Indication: CONSTIPATION
  19. SPIRIVA [Concomitant]
     Indication: CHRONIC OBSTRUCTIVE PULMONARY DISEASE
     Route: 055
  20. LYRICA [Concomitant]
     Indication: FIBROMYALGIA
  21. PREDNISONE [Concomitant]
     Indication: CHRONIC OBSTRUCTIVE PULMONARY DISEASE
  22. ROPINIROLE [Concomitant]
     Indication: PRODUCT USED FOR UNKNOWN INDICATION
  23. TORSEMIDE [Concomitant]
     Indication: OEDEMA PERIPHERAL
  24. TORSEMIDE [Concomitant]
     Indication: JOINT SWELLING
  25. TRAZODONE HCL [Concomitant]
     Indication: INSOMNIA

REACTIONS (6)
  - CATHETER SITE RELATED REACTION [None]
  - HAEMOPTYSIS [None]
  - LUNG NEOPLASM MALIGNANT [None]
  - NASAL SEPTUM DISORDER [None]
  - PNEUMONIA [None]
  - PULMONARY MASS [None]
